FAERS Safety Report 21697756 (Version 1)
Quarter: 2022Q4

REPORT INFORMATION
  Report Type: Spontaneous
  Country: US (occurrence: US)
  Receive Date: 20221208
  Receipt Date: 20221208
  Transmission Date: 20230112
  Serious: No
  Sender: FDA-Public Use
  Company Number: US-TAKEDA-2022TUS094285

PATIENT
  Sex: Female
  Weight: 83 kg

DRUGS (8)
  1. ENTYVIO [Suspect]
     Active Substance: VEDOLIZUMAB
     Indication: Colitis ulcerative
     Dosage: 300 MILLIGRAM
     Route: 042
     Dates: start: 202102
  2. POTASSIUM CHLORIDE [Concomitant]
     Active Substance: POTASSIUM CHLORIDE
     Dosage: 20 MILLIEQUIVALENT
  3. SYNTHROID [Concomitant]
     Active Substance: LEVOTHYROXINE SODIUM
     Dosage: 75 MICROGRAM
  4. PREDNISONE [Concomitant]
     Active Substance: PREDNISONE
     Dosage: 5 MILLIGRAM, QD
  5. BISACODYL [Concomitant]
     Active Substance: BISACODYL
     Dosage: UNK
  6. FERROUS SULFATE [Concomitant]
     Active Substance: FERROUS SULFATE
     Indication: Mineral supplementation
     Dosage: UNK UNK, QD
  7. ZOFRAN [Concomitant]
     Active Substance: ONDANSETRON HYDROCHLORIDE
     Indication: Nausea
     Dosage: 4 MILLIGRAM
  8. SF 5000 PLUS [Concomitant]
     Active Substance: SODIUM FLUORIDE
     Dosage: UNK

REACTIONS (2)
  - No adverse event [Unknown]
  - Pregnancy [Unknown]
